FAERS Safety Report 6087717-0 (Version None)
Quarter: 2009Q1

REPORT INFORMATION
  Report Type: 
  Country: None (occurrence: None)
  Receive Date: 20090223
  Receipt Date: 20090211
  Transmission Date: 20090719
  Serious: Yes (Other)
  Sender: FDA-Public Use
  Company Number: CN-ROCHE-613847

PATIENT
  Sex: Female
  Weight: 60 kg

DRUGS (3)
  1. CELLCEPT [Suspect]
     Indication: RENAL TRANSPLANT
     Route: 048
     Dates: start: 20080301
  2. SANDIMMUNE [Concomitant]
     Indication: RENAL TRANSPLANT
     Dosage: REPORTED AS 75 MG IN THE MORNING AND 50 MG AT NIGHT.
     Route: 048
     Dates: start: 20080801
  3. PREDNISONE TAB [Concomitant]
     Indication: RENAL TRANSPLANT
     Dosage: REPORTED AS RECEIVED IN THE MORNING.
     Route: 048
     Dates: start: 20071211, end: 20090111

REACTIONS (4)
  - EMOTIONAL DISTRESS [None]
  - INSOMNIA [None]
  - OSTEONECROSIS [None]
  - TINNITUS [None]
